FAERS Safety Report 23923418 (Version 2)
Quarter: 2024Q3

REPORT INFORMATION
  Report Type: Spontaneous
  Country: US (occurrence: US)
  Receive Date: 20240531
  Receipt Date: 20240723
  Transmission Date: 20241017
  Serious: No
  Sender: Haleon PLC
  Company Number: US-HALEON-2179197

PATIENT

DRUGS (1)
  1. TUMS CHEWY BITES TROPICAL FRUIT SMOOTHIE [Suspect]
     Active Substance: CALCIUM CARBONATE
     Indication: Dyspepsia

REACTIONS (1)
  - Drug ineffective [Unknown]
